FAERS Safety Report 5944645-6 (Version None)
Quarter: 2008Q4

REPORT INFORMATION
  Report Type: 
  Country: None (occurrence: None)
  Receive Date: 20081107
  Receipt Date: 20081029
  Transmission Date: 20090506
  Serious: Yes (Other)
  Sender: FDA-Public Use
  Company Number: GB-JNJFOC-20080900073

PATIENT
  Sex: Female
  Weight: 114 kg

DRUGS (8)
  1. TRAMADOL HCL [Suspect]
     Dosage: 50 MG CAPSULES
     Route: 048
  2. TRAMADOL HCL [Suspect]
     Indication: BACK PAIN
     Dosage: 50 MG CAPSULES
     Route: 048
  3. TRAMADOL HCL [Suspect]
     Indication: BACK PAIN
     Route: 048
  4. TRAMADOL HCL [Suspect]
     Indication: ARTHRALGIA
     Route: 048
  5. ACETAMINOPHEN [Concomitant]
  6. ATENOLOL [Concomitant]
  7. LEVOTHYROXINE SODIUM [Concomitant]
     Indication: HYPOTHYROIDISM
  8. CITALOPRAM [Concomitant]
     Route: 065

REACTIONS (1)
  - HYPOTHALAMO-PITUITARY DISORDER [None]
